FAERS Safety Report 22537760 (Version 1)
Quarter: 2023Q2

REPORT INFORMATION
  Report Type: Spontaneous
  Country: US (occurrence: None)
  Receive Date: 20230608
  Receipt Date: 20230608
  Transmission Date: 20230722
  Serious: Yes (Life-Threatening)
  Sender: FDA-Public Use
  Company Number: US-Merck Healthcare KGaA-9407215

PATIENT
  Sex: Female

DRUGS (1)
  1. REBIF [Suspect]
     Active Substance: INTERFERON BETA-1A
     Indication: Multiple sclerosis

REACTIONS (12)
  - Cardiac arrest [Unknown]
  - Vitamin D decreased [Unknown]
  - Hypertension [Unknown]
  - Sleep apnoea syndrome [Unknown]
  - Vitamin B12 decreased [Unknown]
  - Blood calcium decreased [Unknown]
  - Insomnia [Unknown]
  - Pain [Unknown]
  - Thyroid function test abnormal [Unknown]
  - Depression [Unknown]
  - Sinusitis [Unknown]
  - Drug ineffective [Unknown]
